FAERS Safety Report 17752175 (Version 1)
Quarter: 2020Q2

REPORT INFORMATION
  Report Type: Report from Study
  Country: PL (occurrence: PL)
  Receive Date: 20200506
  Receipt Date: 20200506
  Transmission Date: 20200714
  Serious: Yes (Other)
  Sender: FDA-Public Use
  Company Number: PL-MYLANLABS-2020M1044869

PATIENT
  Age: 1 Decade

DRUGS (15)
  1. FLUDARABINE [Suspect]
     Active Substance: FLUDARABINE PHOSPHATE
     Indication: ACUTE PROMYELOCYTIC LEUKAEMIA
     Route: 065
  2. IDARUBICIN [Suspect]
     Active Substance: IDARUBICIN
     Indication: ACUTE PROMYELOCYTIC LEUKAEMIA
     Dosage: 12 MILLIGRAM/SQ. METER,QDON DAYS 3, 5 AND 7; AIE REGIMEN
     Route: 065
  3. IDARUBICIN [Suspect]
     Active Substance: IDARUBICIN
     Dosage: 7.5 MILLIGRAM/SQ. METER,QDON DAYS 3 AND 5; AI REGIMEN
     Route: 065
  4. CYTARABINE. [Suspect]
     Active Substance: CYTARABINE
     Indication: ACUTE PROMYELOCYTIC LEUKAEMIA
     Dosage: 100MG/M2QDON DAYS 1-2; AIE REGIMEN
     Route: 065
  5. MITOXANTRONE [Suspect]
     Active Substance: MITOXANTRONE HYDROCHLORIDE
     Indication: ACUTE PROMYELOCYTIC LEUKAEMIA
     Dosage: 7 MG/M2QDON DAYS 3-4; HAM REGIMEN
     Route: 065
  6. THIOGUANINE [Suspect]
     Active Substance: THIOGUANINE
     Indication: ACUTE PROMYELOCYTIC LEUKAEMIA
     Dosage: 40MG/M2FOR 4 CONSECUTIVE DAYS ADMINISTERED EVERY 4 WEEKS; MAINTENANCE CHEMOTHERAPY
     Route: 048
  7. CYTARABINE. [Suspect]
     Active Substance: CYTARABINE
     Dosage: 40 MILLIGRAMIN EACH CHEMOTHERAPY CYCLE AND DURING THE MAINTENANCE TREATMENT
     Route: 037
  8. ETOPOSIDE. [Suspect]
     Active Substance: ETOPOSIDE
     Indication: ACUTE PROMYELOCYTIC LEUKAEMIA
     Dosage: 150MG/M2ON DAYS 6-8; AIE REGIMEN
     Route: 065
  9. CYTARABINE. [Suspect]
     Active Substance: CYTARABINE
     Dosage: 500MG/M2QDON DAYS 1-4; AI REGIMEN
     Route: 065
  10. CYTARABINE. [Suspect]
     Active Substance: CYTARABINE
     Dosage: 1G/M2ON DAYS 1-3; HAM REGIMEN
     Route: 065
  11. ETOPOSIDE. [Suspect]
     Active Substance: ETOPOSIDE
     Dosage: 125MG/M2ON DAYS 2-5; HAE REGIMEN
     Route: 065
  12. CYTARABINE. [Suspect]
     Active Substance: CYTARABINE
     Dosage: 100MG/M2ON DAYS 3-8; AIE REGIMEN
     Route: 065
  13. CYTARABINE. [Suspect]
     Active Substance: CYTARABINE
     Indication: ACUTE PROMYELOCYTIC LEUKAEMIA
     Dosage: 40MG.M2, QDFOR 4 CONSECUTIVE DAYS ADMINISTERED EVERY 4 WEEKS; MAINTENANCE CHEMOTHERAPY
     Route: 042
  14. CYTARABINE. [Suspect]
     Active Substance: CYTARABINE
     Dosage: 3 G/M 2 ON DAYS 1-3; HAE REGIMEN
     Route: 065
  15. TRETINOIN. [Suspect]
     Active Substance: TRETINOIN
     Indication: ACUTE PROMYELOCYTIC LEUKAEMIA
     Dosage: 25MG/M2, QD 3 MONTHS
     Route: 065

REACTIONS (1)
  - Treatment failure [Unknown]
